FAERS Safety Report 7672928-0 (Version None)
Quarter: 2011Q3

REPORT INFORMATION
  Report Type: 
  Country: None (occurrence: None)
  Receive Date: 20110809
  Receipt Date: 20110803
  Transmission Date: 20111222
  Serious: Yes (Hospitalization, Other)
  Sender: FDA-Public Use
  Company Number: PHEH2010US03390

PATIENT
  Sex: Female
  Weight: 114.29 kg

DRUGS (12)
  1. PREMARIN [Concomitant]
  2. SULFASALAZINE [Concomitant]
     Dosage: 500 MG, BID
  3. ZESTRIL [Concomitant]
  4. ZOCOR [Concomitant]
  5. METHOTREXATE [Concomitant]
     Dosage: 10 MG,
  6. STEROIDS NOS [Suspect]
  7. ASPIRIN [Concomitant]
  8. GABAPENTIN [Concomitant]
     Dosage: 300 MG, BID
     Route: 048
  9. PROTONIX [Concomitant]
     Dosage: 40 MG,
  10. ZELNORM [Suspect]
     Indication: IRRITABLE BOWEL SYNDROME
     Route: 048
  11. ZELNORM [Suspect]
     Indication: GASTRIC DISORDER
  12. LEVAQUIN [Concomitant]

REACTIONS (26)
  - HYPERTENSION [None]
  - GASTRIC ULCER [None]
  - GASTROOESOPHAGEAL REFLUX DISEASE [None]
  - CARDIOMEGALY [None]
  - BRONCHOPNEUMONIA [None]
  - VASCULAR CALCIFICATION [None]
  - HYPERLIPIDAEMIA [None]
  - CHRONIC OBSTRUCTIVE PULMONARY DISEASE [None]
  - DIAPHRAGMATIC HERNIA [None]
  - RHEUMATOID ARTHRITIS [None]
  - LIP AND/OR ORAL CAVITY CANCER [None]
  - OSTEOPENIA [None]
  - RESPIRATORY DISTRESS [None]
  - CHEST PAIN [None]
  - DYSPNOEA [None]
  - STRESS URINARY INCONTINENCE [None]
  - SLEEP APNOEA SYNDROME [None]
  - CATARACT [None]
  - MUSCULOSKELETAL PAIN [None]
  - OBESITY [None]
  - ARTERIOSCLEROSIS [None]
  - INJURY [None]
  - INFECTION [None]
  - DEPRESSION [None]
  - CARDIAC DISORDER [None]
  - HYPERGLYCAEMIA [None]
